FAERS Safety Report 17213538 (Version 1)
Quarter: 2019Q4

REPORT INFORMATION
  Report Type: Spontaneous
  Country: KR (occurrence: KR)
  Receive Date: 20191230
  Receipt Date: 20191230
  Transmission Date: 20200122
  Serious: Yes (Other)
  Sender: FDA-Public Use
  Company Number: NVSC2019KR080986

PATIENT
  Age: 57 Year
  Sex: Female

DRUGS (15)
  1. CYCLOPHOSPHAMIDE. [Suspect]
     Active Substance: CYCLOPHOSPHAMIDE
     Dosage: UNK UNK, CYCLIC
     Route: 065
     Dates: start: 20180125, end: 20180316
  2. TRASTUZUMAB. [Suspect]
     Active Substance: TRASTUZUMAB
     Dosage: UNK UNK, CYCLIC
     Route: 065
     Dates: start: 20161108, end: 20171204
  3. VINORELBINE [Suspect]
     Active Substance: VINORELBINE TARTRATE
     Indication: BREAST CANCER
     Dosage: UNK UNK, CYCLIC
     Route: 065
     Dates: start: 20150821, end: 20161014
  4. 5-FLUOROURACIL [Suspect]
     Active Substance: FLUOROURACIL
     Indication: BREAST CANCER
     Dosage: UNK UNK, CYCLIC
     Route: 065
     Dates: start: 20180125, end: 20180316
  5. PACLITAXEL. [Suspect]
     Active Substance: PACLITAXEL
     Indication: BREAST CANCER
     Dosage: UNK, CYCLIC
     Route: 065
     Dates: start: 20180420, end: 20180810
  6. LAPATINIB [Suspect]
     Active Substance: LAPATINIB
     Indication: BREAST CANCER
     Dosage: UNK UNK, CYCLIC
     Route: 065
     Dates: start: 20140325, end: 20150723
  7. TRASTUZUMAB. [Suspect]
     Active Substance: TRASTUZUMAB
     Dosage: UNK UNK, CYCLIC
     Route: 065
     Dates: start: 20180420, end: 20180810
  8. CAPECITABINE. [Suspect]
     Active Substance: CAPECITABINE
     Indication: BREAST CANCER
     Dosage: UNK UNK, CYCLIC
     Route: 065
     Dates: start: 20140325, end: 20150723
  9. LETROZOLE. [Suspect]
     Active Substance: LETROZOLE
     Indication: BREAST CANCER
     Dosage: UNK UNK, CYCLIC
     Route: 065
     Dates: start: 20120925, end: 20140117
  10. TRASTUZUMAB. [Suspect]
     Active Substance: TRASTUZUMAB
     Indication: BREAST CANCER
     Dosage: UNK UNK, CYCLIC
     Route: 065
     Dates: start: 20120925, end: 20130916
  11. DOXORUBICIN [Suspect]
     Active Substance: DOXORUBICIN
     Indication: BREAST CANCER
     Dosage: UNK UNK, CYCLIC
     Route: 065
     Dates: start: 20120324, end: 20120525
  12. CYCLOPHOSPHAMIDE. [Suspect]
     Active Substance: CYCLOPHOSPHAMIDE
     Indication: BREAST CANCER
     Dosage: UNK UNK, CYCLIC
     Route: 065
     Dates: start: 20120324, end: 20120525
  13. METHOTREXATE. [Suspect]
     Active Substance: METHOTREXATE
     Indication: BREAST CANCER
     Dosage: UNK UNK, CYCLIC
     Route: 065
     Dates: start: 20180125, end: 20180316
  14. DOCETAXEL. [Suspect]
     Active Substance: DOCETAXEL
     Indication: BREAST CANCER
     Dosage: UNK UNK, CYCLIC
     Route: 065
     Dates: start: 20120615, end: 20120817
  15. TRASTUZUMAB. [Suspect]
     Active Substance: TRASTUZUMAB
     Dosage: UNK UNK, CYCLIC
     Route: 065
     Dates: start: 20150821, end: 20161014

REACTIONS (8)
  - Metastases to lung [Recovering/Resolving]
  - Metastases to central nervous system [Unknown]
  - Malignant neoplasm progression [Unknown]
  - Leukopenia [Recovering/Resolving]
  - Neutropenia [Recovering/Resolving]
  - Breast cancer [Unknown]
  - Myelodysplastic syndrome [Recovering/Resolving]
  - Thrombocytopenia [Recovering/Resolving]
